FAERS Safety Report 5166568-5 (Version None)
Quarter: 2006Q4

REPORT INFORMATION
  Report Type: 
  Country: None (occurrence: None)
  Receive Date: 20061130
  Receipt Date: 20061130
  Transmission Date: 20070319
  Serious: Yes (Hospitalization, Other)
  Sender: FDA-Public Use
  Company Number: None

PATIENT
  Age: 56 Year
  Sex: Male
  Weight: 63 kg

DRUGS (2)
  1. CETUXIMAB 250MG/M2 [Suspect]
     Indication: NON-SMALL CELL LUNG CANCER
     Dosage: 250MG/M2 IV
     Route: 042
     Dates: start: 20061002
  2. VINFLUNINE 320MG/M2 Q3WK [Suspect]
     Indication: NON-SMALL CELL LUNG CANCER
     Dosage: 350MG/M2 IV
     Route: 042
     Dates: start: 20060925

REACTIONS (10)
  - ANAEMIA [None]
  - CATHETER RELATED COMPLICATION [None]
  - COAGULOPATHY [None]
  - DEEP VEIN THROMBOSIS [None]
  - INFECTION [None]
  - LUNG INFILTRATION [None]
  - PAIN [None]
  - PAIN IN EXTREMITY [None]
  - PYREXIA [None]
  - THROMBOSIS [None]
